FAERS Safety Report 8133089-7 (Version None)
Quarter: 2012Q1

REPORT INFORMATION
  Report Type: 
  Country: None (occurrence: None)
  Receive Date: 20120213
  Receipt Date: 20120206
  Transmission Date: 20120608
  Serious: Yes (Hospitalization)
  Sender: FDA-Public Use
  Company Number: CA-B.I. PHARMACEUTICALS,INC./RIDGEFIELD-2012-CN-00190CN

PATIENT
  Age: 87 Year
  Sex: Female

DRUGS (4)
  1. SPIRIVA [Suspect]
     Route: 065
  2. ADVAIR DISKUS 100/50 [Suspect]
     Dosage: 1 NR
     Route: 055
  3. ATROVENT [Suspect]
     Route: 055
  4. VENTOLIN [Suspect]
     Route: 055

REACTIONS (6)
  - DRY THROAT [None]
  - OROPHARYNGEAL PAIN [None]
  - CHRONIC OBSTRUCTIVE PULMONARY DISEASE [None]
  - BRONCHITIS [None]
  - CONDITION AGGRAVATED [None]
  - DYSPHONIA [None]
